FAERS Safety Report 6206462-1 (Version None)
Quarter: 2009Q2

REPORT INFORMATION
  Report Type: 
  Country: None (occurrence: None)
  Receive Date: 20090528
  Receipt Date: 20090427
  Transmission Date: 20091009
  Serious: No
  Sender: FDA-Public Use
  Company Number: US-BAYER-200839015NA

PATIENT
  Age: 30 Year
  Sex: Female

DRUGS (1)
  1. MIRENA [Suspect]
     Indication: CONTRACEPTION
     Dosage: CONTINUOUS
     Route: 015
     Dates: start: 20080708

REACTIONS (8)
  - ABDOMINAL PAIN LOWER [None]
  - ACNE [None]
  - ALOPECIA [None]
  - BACK PAIN [None]
  - IUCD COMPLICATION [None]
  - MIGRAINE [None]
  - MOOD SWINGS [None]
  - VAGINAL HAEMORRHAGE [None]
